FAERS Safety Report 6437085-7 (Version None)
Quarter: 2009Q4

REPORT INFORMATION
  Report Type: 
  Country: None (occurrence: None)
  Receive Date: 20091112
  Receipt Date: 20091029
  Transmission Date: 20100525
  Serious: Yes (Hospitalization, Other)
  Sender: FDA-Public Use
  Company Number: PHHY2009BR47409

PATIENT
  Age: 81 Year
  Sex: Male
  Weight: 75 kg

DRUGS (1)
  1. FORASEQ [Suspect]
     Indication: LUNG DISORDER
     Dosage: 1 DF, BID

REACTIONS (8)
  - BLOOD DISORDER [None]
  - CARDIAC OPERATION [None]
  - CEREBROVASCULAR ACCIDENT [None]
  - CONDITION AGGRAVATED [None]
  - DYSPNOEA [None]
  - HEMIPLEGIA [None]
  - PNEUMONIA [None]
  - PULMONARY OEDEMA [None]
